FAERS Safety Report 16436394 (Version 1)
Quarter: 2019Q2

REPORT INFORMATION
  Report Type: Spontaneous
  Country: US (occurrence: US)
  Receive Date: 20190614
  Receipt Date: 20190614
  Transmission Date: 20190711
  Serious: No
  Sender: FDA-Public Use
  Company Number: US-JNJFOC-20170104805

PATIENT
  Age: 7 Year
  Sex: Male

DRUGS (1)
  1. CHILDRENS TYLENOL [Suspect]
     Active Substance: ACETAMINOPHEN
     Indication: EAR INFECTION
     Dosage: 2X - 3 HOURS APART
     Route: 048
     Dates: start: 20160104

REACTIONS (1)
  - Drug ineffective for unapproved indication [Unknown]
